FAERS Safety Report 10196592 (Version 2)
Quarter: 2014Q2

REPORT INFORMATION
  Report Type: Spontaneous
  Country: US (occurrence: US)
  Receive Date: 20140527
  Receipt Date: 20140530
  Transmission Date: 20141212
  Serious: Yes (Other)
  Sender: FDA-Public Use
  Company Number: US-RB-066125-14

PATIENT
  Age: 44 Year
  Sex: Male

DRUGS (2)
  1. MUCINEX D [Suspect]
     Route: 048
     Dates: start: 20140515
  2. MUCINEX D [Suspect]
     Indication: SINUS DISORDER
     Route: 048
     Dates: start: 20140516

REACTIONS (4)
  - Hypertension [Recovering/Resolving]
  - Sinusitis [Recovering/Resolving]
  - Epistaxis [Recovered/Resolved]
  - Headache [Recovered/Resolved]
